FAERS Safety Report 25785316 (Version 2)
Quarter: 2025Q4

REPORT INFORMATION
  Report Type: Spontaneous
  Country: US (occurrence: US)
  Receive Date: 20250910
  Receipt Date: 20251008
  Transmission Date: 20260117
  Serious: No
  Sender: ALEXION PHARMACEUTICALS
  Company Number: US-AstraZeneca-CH-00946136A

PATIENT
  Sex: Female

DRUGS (2)
  1. FASENRA [Suspect]
     Active Substance: BENRALIZUMAB
     Dosage: UNK
     Route: 065
  2. FASENRA [Suspect]
     Active Substance: BENRALIZUMAB

REACTIONS (13)
  - Dyspnoea [Unknown]
  - Injection site pain [Unknown]
  - Injection site pruritus [Unknown]
  - Hypersensitivity [Unknown]
  - Asthma [Unknown]
  - Nasal congestion [Unknown]
  - Rhinorrhoea [Unknown]
  - Sneezing [Unknown]
  - Productive cough [Unknown]
  - Cough [Unknown]
  - Product dose omission issue [Unknown]
  - Drug ineffective [Unknown]
  - Arthritis [Unknown]
